FAERS Safety Report 5474321-8 (Version None)
Quarter: 2007Q4

REPORT INFORMATION
  Report Type: 
  Country: None (occurrence: None)
  Receive Date: 20071002
  Receipt Date: 20070927
  Transmission Date: 20080405
  Serious: Yes (Death)
  Sender: FDA-Public Use
  Company Number: FR-NOVOPROD-267992

PATIENT

DRUGS (1)
  1. NOVOSEVEN [Suspect]
     Indication: MULTIPLE INJURIES
     Dosage: 7.2 MG X 2
     Dates: start: 20070201

REACTIONS (1)
  - CEREBROVASCULAR ACCIDENT [None]
